FAERS Safety Report 12312311 (Version 2)
Quarter: 2016Q3

REPORT INFORMATION
  Report Type: Spontaneous
  Country: CA (occurrence: CA)
  Receive Date: 20160428
  Receipt Date: 20160908
  Transmission Date: 20161109
  Serious: Yes (Hospitalization)
  Sender: FDA-Public Use
  Company Number: CA-ROCHE-1748065

PATIENT
  Age: 52 Year
  Sex: Male

DRUGS (7)
  1. RIBAVIRIN. [Suspect]
     Active Substance: RIBAVIRIN
     Route: 048
  2. METHADONE [Concomitant]
     Active Substance: METHADONE HYDROCHLORIDE
     Route: 065
  3. SALBUTAMOL [Concomitant]
     Active Substance: ALBUTEROL
  4. RIBAVIRIN. [Suspect]
     Active Substance: RIBAVIRIN
     Route: 048
  5. PEGASYS [Suspect]
     Active Substance: PEGINTERFERON ALFA-2A
     Indication: CHRONIC HEPATITIS C
     Dosage: THERAPY DURATION: 20 DAYS
     Route: 058
  6. RIBAVIRIN. [Suspect]
     Active Substance: RIBAVIRIN
     Indication: CHRONIC HEPATITIS C
     Route: 048
  7. SOFOSBUVIR [Suspect]
     Active Substance: SOFOSBUVIR
     Indication: CHRONIC HEPATITIS C
     Route: 048

REACTIONS (22)
  - Homicidal ideation [Recovered/Resolved]
  - Drug intolerance [Unknown]
  - Feeling abnormal [Recovered/Resolved]
  - Hepatic pain [Recovered/Resolved]
  - Abnormal dreams [Recovered/Resolved]
  - Agitation [Recovered/Resolved]
  - Haemoglobin decreased [Recovered/Resolved]
  - Insomnia [Recovered/Resolved]
  - Activities of daily living impaired [Recovered/Resolved]
  - Aggression [Recovered/Resolved]
  - Toothache [Recovered/Resolved]
  - Chest discomfort [Recovered/Resolved]
  - Depression [Recovered/Resolved]
  - Memory impairment [Recovered/Resolved]
  - Mood altered [Recovered/Resolved]
  - Mood swings [Recovered/Resolved]
  - Dizziness [Recovered/Resolved]
  - Feeling hot [Recovered/Resolved]
  - Hunger [Recovered/Resolved]
  - Suicidal ideation [Recovered/Resolved]
  - Dysgeusia [Recovered/Resolved]
  - Dyspnoea [Recovered/Resolved]
